FAERS Safety Report 12996889 (Version 1)
Quarter: 2016Q4

REPORT INFORMATION
  Report Type: Spontaneous
  Country: HR (occurrence: HR)
  Receive Date: 20161205
  Receipt Date: 20161205
  Transmission Date: 20170207
  Serious: Yes (Other)
  Sender: FDA-Public Use
  Company Number: HR-ABBVIE-16K-216-1794565-00

PATIENT
  Age: 49 Year
  Sex: Female

DRUGS (4)
  1. ARAVA [Concomitant]
     Active Substance: LEFLUNOMIDE
     Indication: RHEUMATOID ARTHRITIS
     Route: 048
  2. HUMIRA [Suspect]
     Active Substance: ADALIMUMAB
     Indication: RHEUMATOID ARTHRITIS
     Route: 058
     Dates: end: 201611
  3. DICLO DUO [Concomitant]
     Active Substance: DICLOFENAC SODIUM
     Indication: RHEUMATOID ARTHRITIS
     Route: 048
  4. RANITIDINE. [Concomitant]
     Active Substance: RANITIDINE
     Indication: RHEUMATOID ARTHRITIS
     Route: 048

REACTIONS (3)
  - Skin induration [Unknown]
  - Systemic lupus erythematosus [Unknown]
  - Pruritus [Unknown]

NARRATIVE: CASE EVENT DATE: 20161010
